FAERS Safety Report 4361105-7 (Version None)
Quarter: 2004Q2

REPORT INFORMATION
  Report Type: 
  Country: None (occurrence: None)
  Receive Date: 20040520
  Receipt Date: 20040513
  Transmission Date: 20050107
  Serious: Yes (Hospitalization)
  Sender: FDA-Public Use
  Company Number: GB-MERCK-0405GBR00095

PATIENT
  Age: 39 Year
  Sex: Male

DRUGS (1)
  1. VIOXX [Suspect]
     Indication: CHEST PAIN
     Route: 048
     Dates: start: 20040414, end: 20040416

REACTIONS (4)
  - DIARRHOEA [None]
  - HAEMATEMESIS [None]
  - NAUSEA [None]
  - VOMITING [None]
